FAERS Safety Report 12338659 (Version 2)
Quarter: 2016Q2

REPORT INFORMATION
  Report Type: Spontaneous
  Country: US (occurrence: US)
  Receive Date: 20160505
  Receipt Date: 20160607
  Transmission Date: 20160815
  Serious: No
  Sender: FDA-Public Use
  Company Number: US-GLAXOSMITHKLINE-US2016055855

PATIENT
  Age: 73 Year
  Sex: Female

DRUGS (6)
  1. ADVAIR DISKUS [Suspect]
     Active Substance: FLUTICASONE PROPIONATE\SALMETEROL XINAFOATE
     Indication: ASTHMA
  2. ADVAIR DISKUS [Suspect]
     Active Substance: FLUTICASONE PROPIONATE\SALMETEROL XINAFOATE
     Indication: BRONCHIAL HYPERREACTIVITY
  3. VALSARTAN. [Concomitant]
     Active Substance: VALSARTAN
  4. METOPROLOL. [Concomitant]
     Active Substance: METOPROLOL
  5. ADVAIR DISKUS [Suspect]
     Active Substance: FLUTICASONE PROPIONATE\SALMETEROL XINAFOATE
     Indication: NASOPHARYNGITIS
     Dosage: 1 PUFF(S), BID
     Route: 055
     Dates: start: 20160415, end: 20160416
  6. ALBUTEROL INHALER [Concomitant]
     Active Substance: ALBUTEROL

REACTIONS (4)
  - Urticaria [Recovered/Resolved]
  - Burning sensation [Recovered/Resolved]
  - Feeling hot [Recovered/Resolved]
  - Hypersensitivity [Recovered/Resolved]

NARRATIVE: CASE EVENT DATE: 20160415
